FAERS Safety Report 8839635 (Version 1)
Quarter: 2012Q4

REPORT INFORMATION
  Report Type: Spontaneous
  Country: ES (occurrence: None)
  Receive Date: 20121011
  Receipt Date: 20121011
  Transmission Date: 20130627
  Serious: Yes (Other)
  Sender: FDA-Public Use
  Company Number: 1440552

PATIENT
  Age: 57 Year
  Sex: Female
  Weight: 23.13 kg

DRUGS (1)
  1. PACLITAXEL [Suspect]
     Indication: LUNG NEOPLASM MALIGNANT
     Route: 041
     Dates: start: 20120619, end: 20120619

REACTIONS (4)
  - Bronchospasm [None]
  - Psychomotor hyperactivity [None]
  - Hypotension [None]
  - Rash [None]
